FAERS Safety Report 16863792 (Version 4)
Quarter: 2023Q4

REPORT INFORMATION
  Report Type: Report from Study
  Country: AT (occurrence: AT)
  Receive Date: 20190927
  Receipt Date: 20231208
  Transmission Date: 20240109
  Serious: Yes (Hospitalization, Other)
  Sender: FDA-Public Use
  Company Number: AT-TAKEDA-2019TUS050660

PATIENT
  Sex: Female

DRUGS (22)
  1. BRENTUXIMAB VEDOTIN [Suspect]
     Active Substance: BRENTUXIMAB VEDOTIN
     Indication: Hodgkin^s disease
     Dosage: 1.8 MILLIGRAM/KILOGRAM
     Route: 065
     Dates: start: 20190807
  2. BRENTUXIMAB VEDOTIN [Suspect]
     Active Substance: BRENTUXIMAB VEDOTIN
     Dosage: 1.8 MILLIGRAM/KILOGRAM
     Route: 065
     Dates: start: 20190913
  3. BRENTUXIMAB VEDOTIN [Suspect]
     Active Substance: BRENTUXIMAB VEDOTIN
     Dosage: 1.8 MILLIGRAM/KILOGRAM
     Route: 065
     Dates: start: 20191004
  4. DEXAMETHASONE [Suspect]
     Active Substance: DEXAMETHASONE
     Indication: Hodgkin^s disease
     Dosage: UNK
     Route: 065
  5. DEXAMETHASONE [Suspect]
     Active Substance: DEXAMETHASONE
     Dosage: 160 MILLIGRAM/SQ. METER
     Route: 065
     Dates: start: 20191005
  6. DOXORUBICIN [Suspect]
     Active Substance: DOXORUBICIN
     Indication: Hodgkin^s disease
     Dosage: 40 MILLIGRAM/SQ. METER
     Route: 065
     Dates: start: 20190808
  7. DOXORUBICIN [Suspect]
     Active Substance: DOXORUBICIN
     Dosage: 40 MILLIGRAM/SQ. METER
     Route: 065
     Dates: start: 20190914
  8. DOXORUBICIN [Suspect]
     Active Substance: DOXORUBICIN
     Dosage: 39.72 MILLIGRAM/SQ. METER
     Route: 065
     Dates: start: 20191005
  9. CYCLOPHOSPHAMIDE [Suspect]
     Active Substance: CYCLOPHOSPHAMIDE
     Indication: Hodgkin^s disease
     Dosage: 1234 MILLIGRAM/SQ. METER
     Route: 065
     Dates: start: 20190808
  10. CYCLOPHOSPHAMIDE [Suspect]
     Active Substance: CYCLOPHOSPHAMIDE
     Dosage: 1276.75 MILLIGRAM/SQ. METER
     Route: 065
     Dates: start: 20190914
  11. CYCLOPHOSPHAMIDE [Suspect]
     Active Substance: CYCLOPHOSPHAMIDE
     Dosage: 1226.53 MILLIGRAM/SQ. METER
     Route: 065
     Dates: start: 20191005
  12. DACARBAZINE [Suspect]
     Active Substance: DACARBAZINE
     Indication: Hodgkin^s disease
     Dosage: 252 MILLIGRAM/SQ. METER
     Route: 065
     Dates: start: 20190809
  13. DACARBAZINE [Suspect]
     Active Substance: DACARBAZINE
     Dosage: 249.55 MILLIGRAM/SQ. METER
     Route: 065
     Dates: start: 20190915
  14. DACARBAZINE [Suspect]
     Active Substance: DACARBAZINE
     Dosage: 251.15 MILLIGRAM/SQ. METER
     Route: 065
     Dates: start: 20191006
  15. ETOPOSIDE [Suspect]
     Active Substance: ETOPOSIDE
     Indication: Hodgkin^s disease
     Dosage: 153 MILLIGRAM/SQ. METER
     Route: 065
     Dates: start: 20190808
  16. ETOPOSIDE [Suspect]
     Active Substance: ETOPOSIDE
     Dosage: 150.89 MILLIGRAM/SQ. METER
     Route: 065
     Dates: start: 20190914
  17. ETOPOSIDE [Suspect]
     Active Substance: ETOPOSIDE
     Dosage: 151.89 MILLIGRAM/SQ. METER
     Route: 065
     Dates: start: 20191005
  18. PANTOPRAZOLE SODIUM [Concomitant]
     Active Substance: PANTOPRAZOLE SODIUM
     Dosage: 40 MILLIGRAM
     Route: 065
     Dates: start: 20190608
  19. LIDAPRIM                           /00525601/ [Concomitant]
     Dosage: UNK
     Route: 065
     Dates: start: 20190607
  20. VALACYCLOVIR HYDROCHLORIDE [Concomitant]
     Active Substance: VALACYCLOVIR HYDROCHLORIDE
     Dosage: 500 MILLIGRAM
     Route: 065
     Dates: start: 20190607
  21. DEXPANTHENOL [Concomitant]
     Active Substance: DEXPANTHENOL
     Dosage: UNK
     Route: 065
     Dates: start: 20190607
  22. DIPYRONE [Concomitant]
     Active Substance: DIPYRONE
     Dosage: UNK
     Route: 065
     Dates: start: 20190807

REACTIONS (3)
  - Neutropenia [Recovered/Resolved]
  - Pyrexia [Recovered/Resolved]
  - Catheter site inflammation [Recovered/Resolved]

NARRATIVE: CASE EVENT DATE: 20190830
